FAERS Safety Report 5351313-0 (Version None)
Quarter: 2007Q2

REPORT INFORMATION
  Report Type: 
  Country: None (occurrence: None)
  Receive Date: 20070608
  Receipt Date: 20070529
  Transmission Date: 20071010
  Serious: Yes (Hospitalization)
  Sender: FDA-Public Use
  Company Number: US-AMGEN-US226684

PATIENT
  Sex: Female

DRUGS (7)
  1. PANITUMUMAB [Suspect]
     Indication: COLORECTAL CANCER
     Route: 042
     Dates: start: 20070525
  2. POTASSIUM CHLORIDE [Concomitant]
     Route: 048
  3. DIOVAN HCT [Concomitant]
     Route: 065
  4. DILTIAZEM [Concomitant]
     Route: 065
  5. AMIODARONE HCL [Concomitant]
     Route: 065
  6. SYNTHROID [Concomitant]
     Route: 065
  7. MAGNESIUM SULFATE [Concomitant]
     Route: 065

REACTIONS (1)
  - DEHYDRATION [None]
